FAERS Safety Report 13104408 (Version 2)
Quarter: 2017Q1

REPORT INFORMATION
  Report Type: Spontaneous
  Country: FR (occurrence: FR)
  Receive Date: 20170111
  Receipt Date: 20170131
  Transmission Date: 20170428
  Serious: Yes (Hospitalization)
  Sender: FDA-Public Use
  Company Number: FR-AMGEN-FRASP2017002594

PATIENT
  Age: 68 Year
  Sex: Male

DRUGS (8)
  1. XGEVA [Suspect]
     Active Substance: DENOSUMAB
     Indication: METASTASES TO BONE
     Dosage: 120 MG, QMO
     Route: 058
     Dates: start: 20160901, end: 20161223
  2. ZELBORAF [Concomitant]
     Active Substance: VEMURAFENIB
     Dosage: 240 MG, (6 TABLETS PER DAY) QD
     Route: 048
     Dates: start: 20161223
  3. COTELLIC [Concomitant]
     Active Substance: COBIMETINIB
     Dosage: 20 MG, (TWO TABLETS PER DAY) QD
     Route: 048
     Dates: start: 20161223
  4. ZELBORAF [Concomitant]
     Active Substance: VEMURAFENIB
     Indication: MALIGNANT MELANOMA
     Dosage: 240 MG, (8 TABLETS PER DAY) (4 DF, 2 IN 1 DAY) QD
     Route: 048
     Dates: start: 20160901
  5. COTELLIC [Concomitant]
     Active Substance: COBIMETINIB
     Indication: MALIGNANT MELANOMA
     Dosage: 20 MG, (3 DF, 1 IN 1 DAY) QD
     Route: 048
     Dates: start: 20160901
  6. SEVIKAR [Concomitant]
     Active Substance: AMLODIPINE BESYLATE\OLMESARTAN MEDOXOMIL
  7. PARKINANE [Concomitant]
     Active Substance: TRIHEXYPHENIDYL HYDROCHLORIDE
  8. GAVISCON [Concomitant]
     Active Substance: ALUMINUM HYDROXIDE\MAGNESIUM CARBONATE

REACTIONS (2)
  - Myalgia [Recovered/Resolved]
  - Muscle spasms [Recovered/Resolved]

NARRATIVE: CASE EVENT DATE: 20161219
